FAERS Safety Report 9912654 (Version 1)
Quarter: 2014Q1

REPORT INFORMATION
  Report Type: Spontaneous
  Country: US (occurrence: None)
  Receive Date: 20140218
  Receipt Date: 20140218
  Transmission Date: 20141002
  Serious: Yes (Other)
  Sender: FDA-Public Use
  Company Number: None

PATIENT
  Age: 66 Year
  Sex: Female
  Weight: 90.72 kg

DRUGS (19)
  1. ARIMIDEX [Suspect]
     Indication: BREAST CANCER METASTATIC
     Dates: start: 20140110, end: 20140204
  2. VITAMIN C [Concomitant]
  3. ASPIRIN [Concomitant]
  4. HEPARIN [Concomitant]
  5. LEVOTHYROXINE [Concomitant]
  6. MULTIVITAMIN [Concomitant]
  7. SIMETHICONE [Concomitant]
  8. VITAMIN E [Concomitant]
  9. TYLENOL [Concomitant]
  10. ALBUTEROL [Concomitant]
  11. BISACODYL [Concomitant]
  12. CALCIUM CARBONATE [Concomitant]
  13. HYDROXYZINE [Concomitant]
  14. VICODIN [Concomitant]
  15. IBUPROFEN [Concomitant]
  16. LORAZEPAM [Concomitant]
  17. ZOFRAN [Concomitant]
  18. PROCHLORPERAZINE [Concomitant]
  19. SENNA [Concomitant]

REACTIONS (3)
  - Hyperbilirubinaemia [None]
  - Blood alkaline phosphatase increased [None]
  - Jaundice cholestatic [None]
